FAERS Safety Report 8772360 (Version 1)
Quarter: 2012Q4

REPORT INFORMATION
  Report Type: 
  Country: US (occurrence: US)
  Receive Date: 20120906
  Receipt Date: 20120906
  Transmission Date: 20130627
  Serious: No
  Sender: FDA-Public Use
  Company Number: US-009507513-1208USA011067

PATIENT

DRUGS (1)
  1. .ALPHA.-AMYLASE A TYPE-1/2 [Suspect]
     Dosage: UNK
     Dates: start: 199208

REACTIONS (4)
  - Neuralgia [Unknown]
  - Nerve injury [Unknown]
  - Intervertebral disc degeneration [Unknown]
  - Thyroid disorder [Unknown]
